FAERS Safety Report 15229755 (Version 1)
Quarter: 2018Q3

REPORT INFORMATION
  Report Type: Spontaneous
  Country: US (occurrence: US)
  Receive Date: 20180802
  Receipt Date: 20180802
  Transmission Date: 20181010
  Serious: Yes (Other)
  Sender: FDA-Public Use
  Company Number: US-ACCORD-061910

PATIENT
  Age: 50 Year
  Sex: Female
  Weight: 94.8 kg

DRUGS (16)
  1. HYDROCHLOROTHIAZIDE. [Concomitant]
     Active Substance: HYDROCHLOROTHIAZIDE
     Route: 048
     Dates: start: 20070101
  2. DEXAMETHASONE. [Concomitant]
     Active Substance: DEXAMETHASONE
  3. GRANISETRON [Concomitant]
     Active Substance: GRANISETRON
  4. ONDANSETRON [Concomitant]
     Active Substance: ONDANSETRON
  5. NORVASC [Concomitant]
     Active Substance: AMLODIPINE BESYLATE
     Dates: start: 20080101
  6. GENTEAL MILD [Concomitant]
     Active Substance: HYPROMELLOSE 2910 (4000 MPA.S)
     Dosage: 1 DROPS BILAYETE TWO TIMES PER DAY
  7. AMLODIPINE [Concomitant]
     Active Substance: AMLODIPINE BESYLATE
     Route: 048
     Dates: start: 20130211
  8. NUVIGIL [Concomitant]
     Active Substance: ARMODAFINIL
     Route: 048
     Dates: start: 20100202
  9. DOCETAXEL ACCORD [Suspect]
     Active Substance: DOCETAXEL
     Indication: BREAST CANCER STAGE II
     Dosage: 150 MG/KG, 113 MG/KG, 100 MG/KG
     Route: 042
     Dates: start: 20130315, end: 20130628
  10. NEXIUM [Concomitant]
     Active Substance: ESOMEPRAZOLE MAGNESIUM
     Route: 048
     Dates: start: 20060206
  11. PATANOL [Concomitant]
     Active Substance: OLOPATADINE HYDROCHLORIDE
     Dosage: 2 DROPS BILATEYE TWO TIMES PER DAY
  12. SYSTANE (HYPROMELLOSE 2910 (4000 MPA.S)) [Concomitant]
     Active Substance: HYPROMELLOSE 2910 (4000 MPA.S)
     Dosage: 1 DROPS BILATEYE TWO TIMES PER DAY
  13. LEVAQUIN [Concomitant]
     Active Substance: LEVOFLOXACIN
  14. PARAPLATIN [Suspect]
     Active Substance: CARBOPLATIN
     Indication: BREAST CANCER STAGE II
     Dosage: Q 3 WEEKS X 6 CYCLES
     Route: 042
     Dates: start: 20130315, end: 20130628
  15. TRASTUZUMAB. [Suspect]
     Active Substance: TRASTUZUMAB
     Indication: BREAST CANCER STAGE II
     Dosage: HERCEPTIN DAY 1, DAYS 8 AND 15, ALL GIVEN Q 3 WEEKS X 6 CYCLES.
     Route: 042
     Dates: start: 20130301, end: 20140307
  16. PROMETHAZINE [Concomitant]
     Active Substance: PROMETHAZINE\PROMETHAZINE HYDROCHLORIDE

REACTIONS (1)
  - Alopecia [Not Recovered/Not Resolved]

NARRATIVE: CASE EVENT DATE: 20131201
